FAERS Safety Report 16923791 (Version 4)
Quarter: 2019Q4

REPORT INFORMATION
  Report Type: Spontaneous
  Country: ES (occurrence: ES)
  Receive Date: 20191016
  Receipt Date: 20191101
  Transmission Date: 20200122
  Serious: Yes (Other)
  Sender: FDA-Public Use
  Company Number: ES-AUROBINDO-AUR-APL-2019-066929

PATIENT
  Age: 84 Year
  Sex: Female

DRUGS (12)
  1. VANCOMYCIN [Concomitant]
     Active Substance: VANCOMYCIN
     Indication: STAPHYLOCOCCAL INFECTION
  2. RIFAMPICIN [Concomitant]
     Active Substance: RIFAMPIN
     Indication: ENTEROBACTER INFECTION
     Dosage: 300 MILLIGRAM, ONCE A DAY, IN THE MORNING
     Route: 048
     Dates: start: 201807
  3. LINEZOLID. [Suspect]
     Active Substance: LINEZOLID
     Indication: DEVICE RELATED INFECTION
     Dosage: 600 MILLIGRAM, TWO TIMES A DAY
     Route: 048
  4. LINEZOLID. [Suspect]
     Active Substance: LINEZOLID
     Indication: ENTEROBACTER INFECTION
     Dosage: UNK
     Route: 065
  5. VANCOMYCIN [Concomitant]
     Active Substance: VANCOMYCIN
     Indication: ENTEROBACTER INFECTION
     Dosage: 1000 MILLIGRAM EVERY 12 HOURS
     Route: 042
  6. CIPROFLOXACIN. [Concomitant]
     Active Substance: CIPROFLOXACIN
     Indication: STAPHYLOCOCCAL INFECTION
  7. CIPROFLOXACIN. [Concomitant]
     Active Substance: CIPROFLOXACIN
     Indication: ENTEROBACTER INFECTION
  8. RIFAMPICIN [Concomitant]
     Active Substance: RIFAMPIN
     Indication: STAPHYLOCOCCAL INFECTION
     Dosage: 600 MILLIGRAM, ONCE A DAY, IN THE EVENING
     Route: 048
     Dates: start: 201807
  9. CIPROFLOXACIN. [Concomitant]
     Active Substance: CIPROFLOXACIN
     Indication: DEVICE RELATED INFECTION
     Dosage: 500 MILLIGRAM, TWO TIMES A DAY
     Route: 048
     Dates: start: 201807
  10. LINEZOLID. [Suspect]
     Active Substance: LINEZOLID
     Indication: STAPHYLOCOCCAL INFECTION
     Dosage: UNK
     Route: 065
  11. RIFAMPICIN [Concomitant]
     Active Substance: RIFAMPIN
     Indication: DEVICE RELATED INFECTION
     Dosage: 600 MILLIGRAM, ONCE A DAY
     Route: 048
     Dates: start: 2018
  12. VANCOMYCIN [Concomitant]
     Active Substance: VANCOMYCIN
     Indication: DEVICE RELATED INFECTION

REACTIONS (7)
  - Platelet count decreased [Recovering/Resolving]
  - Platelet disorder [Recovering/Resolving]
  - Blood disorder [Recovering/Resolving]
  - Haemoglobin abnormal [Recovering/Resolving]
  - Haematocrit abnormal [Recovering/Resolving]
  - Haematocrit decreased [Recovering/Resolving]
  - Haemoglobin decreased [Recovering/Resolving]

NARRATIVE: CASE EVENT DATE: 2018
